FAERS Safety Report 6816588-7 (Version None)
Quarter: 2010Q2

REPORT INFORMATION
  Report Type: 
  Country: None (occurrence: None)
  Receive Date: 20100630
  Receipt Date: 20100621
  Transmission Date: 20101027
  Serious: Yes (Death)
  Sender: FDA-Public Use
  Company Number: 2010US002324

PATIENT
  Age: 17 Year
  Sex: Male

DRUGS (2)
  1. AMBISOME [Suspect]
     Indication: CANDIDIASIS
     Dosage: 2 TO 3 MG/KG, IV NOS
     Route: 042
  2. AMBISOME [Suspect]
     Indication: EVIDENCE BASED TREATMENT
     Dosage: 2 TO 3 MG/KG, IV NOS
     Route: 042

REACTIONS (1)
  - MUSCLE DISORDER [None]
